FAERS Safety Report 9104217 (Version 2)
Quarter: 2013Q1

REPORT INFORMATION
  Report Type: Spontaneous
  Country: US (occurrence: US)
  Receive Date: 20130219
  Receipt Date: 20130304
  Transmission Date: 20140127
  Serious: Yes (Other)
  Sender: FDA-Public Use
  Company Number: PHEH2013US003781

PATIENT
  Sex: Female

DRUGS (3)
  1. DIOVAN [Suspect]
     Dosage: 320 MG, UNK
  2. FELODIPINE [Concomitant]
  3. GLUCOPHAGE [Concomitant]

REACTIONS (6)
  - Diabetes mellitus [Unknown]
  - Drug withdrawal syndrome [Unknown]
  - Pain in extremity [Unknown]
  - Depressed mood [Unknown]
  - Pain [Unknown]
  - Blood pressure increased [Unknown]
